FAERS Safety Report 4709197-7 (Version None)
Quarter: 2005Q3

REPORT INFORMATION
  Report Type: 
  Country: None (occurrence: None)
  Receive Date: 20050707
  Receipt Date: 20050707
  Transmission Date: 20060218
  Serious: Yes (Other)
  Sender: FDA-Public Use
  Company Number: None

PATIENT
  Age: 38 Year
  Sex: Male
  Weight: 92.5338 kg

DRUGS (2)
  1. DEXTRO COMBO 10 MG. RANBAXY [Suspect]
     Indication: ATTENTION DEFICIT/HYPERACTIVITY DISORDER
     Dosage: 10MG 3X DAILY ORAL
     Route: 048
     Dates: start: 20050703, end: 20050705
  2. LITHIUM CARBONATE [Concomitant]

REACTIONS (4)
  - AGITATION [None]
  - HEADACHE [None]
  - PHOTOPHOBIA [None]
  - SLEEP DISORDER [None]
